FAERS Safety Report 19061863 (Version 1)
Quarter: 2021Q1

REPORT INFORMATION
  Report Type: Spontaneous
  Country: US (occurrence: US)
  Receive Date: 20210325
  Receipt Date: 20210325
  Transmission Date: 20210420
  Serious: No
  Sender: FDA-Public Use
  Company Number: US-ALXN-A202103821

PATIENT
  Age: 65 Year
  Sex: Female

DRUGS (1)
  1. ULTOMIRIS [Suspect]
     Active Substance: RAVULIZUMAB-CWVZ
     Indication: PAROXYSMAL NOCTURNAL HAEMOGLOBINURIA
     Dosage: UNK, EVERY 8 WEEKS
     Route: 042
     Dates: start: 201904

REACTIONS (7)
  - Disturbance in attention [Unknown]
  - Infusion site scar [Unknown]
  - Feeling abnormal [Unknown]
  - Poor venous access [Unknown]
  - Adverse drug reaction [Unknown]
  - Malaise [Unknown]
  - Asthenia [Unknown]

NARRATIVE: CASE EVENT DATE: 202101
